FAERS Safety Report 6409126-4 (Version None)
Quarter: 2009Q4

REPORT INFORMATION
  Report Type: 
  Country: None (occurrence: None)
  Receive Date: 20091021
  Receipt Date: 20091008
  Transmission Date: 20100525
  Serious: Yes (Hospitalization)
  Sender: FDA-Public Use
  Company Number: PHEH2009US13412

PATIENT
  Sex: Female

DRUGS (1)
  1. RECLAST [Suspect]
     Dosage: UNK, ONCE/SINGLE
     Dates: start: 20090201, end: 20090201

REACTIONS (3)
  - LOSS OF CONSCIOUSNESS [None]
  - PAIN [None]
  - TREMOR [None]
